FAERS Safety Report 22062623 (Version 1)
Quarter: 2023Q1

REPORT INFORMATION
  Report Type: Report from Study
  Country: BR (occurrence: BR)
  Receive Date: 20230306
  Receipt Date: 20230306
  Transmission Date: 20230417
  Serious: Yes (Other)
  Sender: FDA-Public Use
  Company Number: BR-CELLTRION INC.-2022BR012759

PATIENT

DRUGS (3)
  1. INFLIXIMAB [Suspect]
     Active Substance: INFLIXIMAB
     Indication: Arthritis
     Dosage: 4 AMPOULES EVERY 2 MONTHS
     Route: 042
     Dates: start: 20220508
  2. PREDNISOLONE [Concomitant]
     Active Substance: PREDNISOLONE
     Indication: Inflammation
     Dosage: 1 PILL PER DAY, 2 OR 3 YEARS AGO
     Route: 048
  3. VENAFLON [Concomitant]
     Indication: Product used for unknown indication
     Dosage: 1 PILL PER DAY, 3 OR 4 MONTHS AGO
     Route: 048

REACTIONS (2)
  - Pulmonary embolism [Unknown]
  - Therapy interrupted [Unknown]
